FAERS Safety Report 4751792-3 (Version None)
Quarter: 2005Q3

REPORT INFORMATION
  Report Type: 
  Country: None (occurrence: None)
  Receive Date: 20050818
  Receipt Date: 20040827
  Transmission Date: 20060218
  Serious: Yes (Hospitalization)
  Sender: FDA-Public Use
  Company Number: 2004230614US

PATIENT
  Age: 61 Year

DRUGS (5)
  1. DELTASONE [Suspect]
     Indication: RHEUMATOID ARTHRITIS
     Dosage: 30 MG, QD, ORAL
     Route: 048
  2. MOBIC [Suspect]
     Indication: OSTEOARTHRITIS
     Dosage: 15 MG, QD,ORAL
     Route: 048
  3. METHOTREXATE [Concomitant]
  4. WELLBUTRIN [Concomitant]
  5. VICODIN [Concomitant]

REACTIONS (8)
  - ABDOMINAL PAIN [None]
  - BLOOD PRESSURE DECREASED [None]
  - GASTROINTESTINAL HAEMORRHAGE [None]
  - HAEMATEMESIS [None]
  - LEUKOCYTOSIS [None]
  - MELAENA [None]
  - NAUSEA [None]
  - VOMITING [None]
